FAERS Safety Report 24391677 (Version 3)
Quarter: 2025Q3

REPORT INFORMATION
  Report Type: Spontaneous
  Country: EU (occurrence: EU)
  Receive Date: 20241003
  Receipt Date: 20250809
  Transmission Date: 20251020
  Serious: Yes (Other)
  Sender: ALEXION PHARMACEUTICALS
  Company Number: None

PATIENT
  Age: 54 Year
  Sex: Female
  Weight: 68 kg

DRUGS (5)
  1. BENRALIZUMAB [Suspect]
     Active Substance: BENRALIZUMAB
     Indication: Asthma
     Dosage: 1 X PER 4 WEKEN
     Route: 065
     Dates: start: 20240625
  2. BENRALIZUMAB [Suspect]
     Active Substance: BENRALIZUMAB
     Dosage: 1 X PER 4 WEKEN
     Dates: start: 20240625
  3. IVABRADINE [Concomitant]
     Active Substance: IVABRADINE
  4. ALBUTEROL [Concomitant]
     Active Substance: ALBUTEROL
  5. THEOPHYLLINE [Concomitant]
     Active Substance: THEOPHYLLINE

REACTIONS (7)
  - Dyspnoea [Not Recovered/Not Resolved]
  - Asthma [Not Recovered/Not Resolved]
  - Dysphonia [Recovering/Resolving]
  - Osteoarthritis [Not Recovered/Not Resolved]
  - Oropharyngeal pain [Recovering/Resolving]
  - Condition aggravated [Not Recovered/Not Resolved]
  - Arthritis [Not Recovered/Not Resolved]
